FAERS Safety Report 8186310-3 (Version None)
Quarter: 2012Q1

REPORT INFORMATION
  Report Type: 
  Country: None (occurrence: None)
  Receive Date: 20120301
  Receipt Date: 20120119
  Transmission Date: 20120608
  Serious: Yes (Hospitalization)
  Sender: FDA-Public Use
  Company Number: ES-025168

PATIENT
  Age: 79 Year
  Sex: Male
  Weight: 75.8 kg

DRUGS (6)
  1. (OFATUMUMAB) [Suspect]
     Indication: CHRONIC LYMPHOCYTIC LEUKAEMIA
     Dosage: INJECTION,
     Route: 042
     Dates: start: 20100430
  2. IPRATROPIUM BROMIDE [Concomitant]
  3. (CHLORAMBUCIL) [Suspect]
     Indication: CHRONIC LYMPHOCYTIC LEUKAEMIA
     Dosage: TABLET 10 MG/M2
     Route: 048
     Dates: start: 20100430
  4. ACETYLCYSTEINE [Concomitant]
  5. LEVOFLOXACIN [Concomitant]
  6. ACETYLSALICYLIC ACID SRT [Concomitant]

REACTIONS (1)
  - LOBAR PNEUMONIA [None]
